FAERS Safety Report 6419566-5 (Version None)
Quarter: 2009Q4

REPORT INFORMATION
  Report Type: 
  Country: None (occurrence: None)
  Receive Date: 20091029
  Receipt Date: 20091026
  Transmission Date: 20100525
  Serious: Yes (Hospitalization, Other)
  Sender: FDA-Public Use
  Company Number: IR-ROXANE LABORATORIES, INC.-2009-RO-01095RO

PATIENT
  Age: 22 Year
  Sex: Male

DRUGS (13)
  1. AZATHIOPRINE [Suspect]
     Indication: IMMUNOSUPPRESSANT DRUG THERAPY
  2. MYCOPHENOLATE MOFETIL [Suspect]
     Indication: IMMUNOSUPPRESSANT DRUG THERAPY
  3. AMPHOTERICIN B [Suspect]
     Indication: ASPERGILLOSIS
     Route: 042
  4. AMPHOTERICIN B [Suspect]
  5. AMPHOTERICIN B [Suspect]
     Route: 061
  6. IMIPENEM [Suspect]
     Indication: ASPERGILLOSIS
     Route: 042
  7. VANCOMYCIN [Suspect]
     Indication: ASPERGILLOSIS
     Route: 042
  8. VANCOMYCIN [Suspect]
  9. CEFTAZIDIME [Suspect]
     Indication: ASPERGILLOSIS
  10. ATROPINE [Suspect]
     Indication: ASPERGILLOSIS
     Route: 061
  11. VORICONAZOLE [Suspect]
     Indication: ASPERGILLOSIS
     Route: 042
  12. VORICONAZOLE [Suspect]
     Route: 042
  13. VORICONAZOLE [Suspect]

REACTIONS (7)
  - ASPERGILLOSIS [None]
  - DRUG INEFFECTIVE [None]
  - GRANULOMA [None]
  - HYPHAEMA [None]
  - NECROSIS [None]
  - RETINAL DETACHMENT [None]
  - THROMBOCYTOPENIA [None]
